FAERS Safety Report 19025617 (Version 3)
Quarter: 2021Q2

REPORT INFORMATION
  Report Type: Spontaneous
  Country: US (occurrence: US)
  Receive Date: 20210318
  Receipt Date: 20210409
  Transmission Date: 20210717
  Serious: Yes (Life-Threatening, Hospitalization, Other)
  Sender: FDA-Public Use
  Company Number: NVSC2021US060707

PATIENT
  Sex: Male
  Weight: 73.4 kg

DRUGS (19)
  1. JARDIANCE [Concomitant]
     Active Substance: EMPAGLIFLOZIN
     Indication: PRODUCT USED FOR UNKNOWN INDICATION
     Dosage: 10 MG, QD (1DF)
     Route: 048
  2. PRILOSEC [Concomitant]
     Active Substance: OMEPRAZOLE MAGNESIUM
     Indication: PRODUCT USED FOR UNKNOWN INDICATION
     Dosage: 10 MG, QD (DAILY WITH BREAKFAST)
     Route: 048
  3. MIRALAX [Concomitant]
     Active Substance: POLYETHYLENE GLYCOL 3350
     Indication: PRODUCT USED FOR UNKNOWN INDICATION
     Dosage: 17 G, QD, PACKET
     Route: 065
  4. LIPITOR [Concomitant]
     Active Substance: ATORVASTATIN CALCIUM
     Indication: PRODUCT USED FOR UNKNOWN INDICATION
     Dosage: 0.5 DF, QD (20 MG TOTAL)
     Route: 048
  5. COENZYME Q10 [Concomitant]
     Active Substance: DIETARY SUPPLEMENT\UBIDECARENONE
     Indication: PRODUCT USED FOR UNKNOWN INDICATION
     Dosage: 50 MG, QD
     Route: 048
  6. TYLENOL [Concomitant]
     Active Substance: ACETAMINOPHEN
     Indication: PAIN
     Dosage: 500 MG, Q6H  (2 TABLETS, 1000MG TOTAL)
     Route: 048
  7. FERRIC SULFATE [Concomitant]
     Active Substance: FERRIC SULFATE
     Indication: PRODUCT USED FOR UNKNOWN INDICATION
     Dosage: 325 MG, QD (DAILY WITH BREAKFAST)
     Route: 048
  8. LISINOPRIL. [Suspect]
     Active Substance: LISINOPRIL
     Indication: PRODUCT USED FOR UNKNOWN INDICATION
     Dosage: UNK
     Route: 065
  9. ADRENALIN [Concomitant]
     Active Substance: EPINEPHRINE
     Indication: ANAPHYLACTIC REACTION
     Dosage: UNK, LAST GIVEN AS 5:37 PM
     Route: 065
  10. SOLU?MEDROL [Concomitant]
     Active Substance: METHYLPREDNISOLONE SODIUM SUCCINATE
     Indication: ANAPHYLACTIC REACTION
     Dosage: UNK, LAST GIVEN AT 5:44 PM
     Route: 065
  11. BENADRYL [Concomitant]
     Active Substance: DIPHENHYDRAMINE HYDROCHLORIDE
     Indication: ANAPHYLACTIC REACTION
     Dosage: UNK, CASE GIVEN AT 5:43 PM
     Route: 065
  12. CYKLOKAPRON [Concomitant]
     Active Substance: TRANEXAMIC ACID
     Indication: ANAPHYLACTIC REACTION
     Dosage: UNK, STOPPED AT 6:38
     Route: 065
  13. ASPIRIN. [Concomitant]
     Active Substance: ASPIRIN
     Indication: PRODUCT USED FOR UNKNOWN INDICATION
     Dosage: 81 MG, QD (1 DF)
     Route: 048
  14. COREG [Concomitant]
     Active Substance: CARVEDILOL
     Indication: PRODUCT USED FOR UNKNOWN INDICATION
     Dosage: 3.125 MG, BID (1 DF)
     Route: 048
  15. METFORMIN [Concomitant]
     Active Substance: METFORMIN HYDROCHLORIDE
     Indication: PRODUCT USED FOR UNKNOWN INDICATION
     Dosage: 500 MG, QD (DAILY WITH BREAKFAST)
     Route: 048
  16. ENTRESTO [Suspect]
     Active Substance: SACUBITRIL\VALSARTAN
     Indication: PRODUCT USED FOR UNKNOWN INDICATION
     Dosage: UNK (STARTED LAST FALL AT THE LOWEST DOSAGE)
     Route: 065
  17. PEPCID [Concomitant]
     Active Substance: FAMOTIDINE
     Indication: ANAPHYLACTIC REACTION
     Dosage: UNK, LA ST GIVEN AT 5:43
     Route: 065
  18. VITAMIIN C [Concomitant]
     Active Substance: ASCORBIC ACID
     Indication: PRODUCT USED FOR UNKNOWN INDICATION
     Dosage: 1 DF, QD
     Route: 048
  19. PLAVIX [Concomitant]
     Active Substance: CLOPIDOGREL BISULFATE
     Indication: PRODUCT USED FOR UNKNOWN INDICATION
     Dosage: 75 MG, QD (1DF)
     Route: 048

REACTIONS (5)
  - Swollen tongue [Unknown]
  - Contraindicated product administered [Unknown]
  - Hypersensitivity [Unknown]
  - Acute left ventricular failure [Unknown]
  - Lip swelling [Unknown]
